FAERS Safety Report 8717551 (Version 2)
Quarter: 2012Q4

REPORT INFORMATION
  Report Type: 
  Country: US (occurrence: US)
  Receive Date: 20120810
  Receipt Date: 20121009
  Transmission Date: 20130627
  Serious: Yes (Death, Other)
  Sender: FDA-Public Use
  Company Number: US-INCYTE CORPORATION-2012IN001457

PATIENT
  Age: 75 None
  Sex: Male

DRUGS (5)
  1. JAKAFI [Suspect]
     Indication: MYELOFIBROSIS
     Dosage: Not specified
     Route: 048
     Dates: start: 201203, end: 201204
  2. JAKAFI [Suspect]
     Dosage: Not specified
     Route: 048
     Dates: start: 201204, end: 201205
  3. MUCINEX [Concomitant]
     Dosage: UNK
  4. VITAMIN D [Concomitant]
  5. CALCIUM [Concomitant]

REACTIONS (6)
  - Disease progression [Fatal]
  - Pancytopenia [Unknown]
  - Anaemia [None]
  - Thrombocytopenia [None]
  - Leukocytosis [None]
  - Performance status decreased [None]
